FAERS Safety Report 8285841-5 (Version None)
Quarter: 2012Q2

REPORT INFORMATION
  Report Type: 
  Country: None (occurrence: None)
  Receive Date: 20120413
  Receipt Date: 20120402
  Transmission Date: 20120825
  Serious: Yes (Other)
  Sender: FDA-Public Use
  Company Number: US-ROCHE-1055448

PATIENT

DRUGS (4)
  1. ALLOPURINOL [Concomitant]
  2. LENALIDOMIDE [Suspect]
     Indication: CHRONIC LYMPHOCYTIC LEUKAEMIA
     Route: 065
  3. MABTHERA [Suspect]
     Indication: CHRONIC LYMPHOCYTIC LEUKAEMIA
     Route: 042
  4. ASPIRIN [Concomitant]

REACTIONS (14)
  - ALANINE AMINOTRANSFERASE INCREASED [None]
  - TUMOUR FLARE [None]
  - ANAEMIA [None]
  - PULMONARY EMBOLISM [None]
  - DEEP VEIN THROMBOSIS [None]
  - FEBRILE NEUTROPENIA [None]
  - THROMBOCYTOPENIA [None]
  - ASPARTATE AMINOTRANSFERASE INCREASED [None]
  - PNEUMONIA [None]
  - RASH [None]
  - NEUTROPENIA [None]
  - HYPOPHOSPHATAEMIA [None]
  - FATIGUE [None]
  - INFUSION RELATED REACTION [None]
